FAERS Safety Report 12255589 (Version 2)
Quarter: 2016Q2

REPORT INFORMATION
  Report Type: Spontaneous
  Country: IT (occurrence: IT)
  Receive Date: 20160412
  Receipt Date: 20160420
  Transmission Date: 20160815
  Serious: Yes (Other)
  Sender: FDA-Public Use
  Company Number: IT-ACCORD-039577

PATIENT
  Age: 52 Year
  Sex: Female
  Weight: 60 kg

DRUGS (4)
  1. NEULASTA [Suspect]
     Active Substance: PEGFILGRASTIM
     Indication: BREAST CANCER METASTATIC
     Dosage: STRENGTH: 6 MG
     Route: 058
     Dates: start: 20160320, end: 20160320
  2. HERCEPTIN [Concomitant]
     Active Substance: TRASTUZUMAB
     Dosage: STRENGTH: 600 MG
     Route: 042
     Dates: start: 20160317, end: 20160317
  3. DOCETAXEL. [Suspect]
     Active Substance: DOCETAXEL
     Indication: BREAST CANCER METASTATIC
     Dosage: DOCETAXEL ANHYDROUS
     Route: 042
     Dates: start: 20160317, end: 20160317
  4. PERTUZUMAB [Concomitant]
     Active Substance: PERTUZUMAB
     Route: 042
     Dates: start: 20160317, end: 20160317

REACTIONS (4)
  - Erythema [Recovering/Resolving]
  - Oedema [Recovering/Resolving]
  - Wheezing [Recovering/Resolving]
  - Laryngitis [Recovering/Resolving]

NARRATIVE: CASE EVENT DATE: 20160323
